FAERS Safety Report 5258622-4 (Version None)
Quarter: 2007Q1

REPORT INFORMATION
  Report Type: 
  Country: None (occurrence: None)
  Receive Date: 20070305
  Receipt Date: 20070223
  Transmission Date: 20070707
  Serious: Yes (Other)
  Sender: FDA-Public Use
  Company Number: 163-20785-07021200

PATIENT
  Age: 46 Year
  Sex: Female
  Weight: 95.5 kg

DRUGS (5)
  1. THALOMID [Suspect]
     Indication: ACUTE MYELOID LEUKAEMIA
     Dosage: 100 MG, QHS X7 DAYS, ORAL
     Route: 048
     Dates: start: 20030606, end: 20030612
  2. THALOMID [Suspect]
     Indication: ACUTE MYELOID LEUKAEMIA
     Dosage: 100 MG, QHS X7 DAYS, ORAL
     Route: 048
     Dates: start: 20030619, end: 20030622
  3. FLUDARABINE PHOSPHATE [Suspect]
     Indication: ACUTE MYELOID LEUKAEMIA
     Dosage: 23 MG, QD X 5 DOSES, INTRAVENOUS
     Route: 042
     Dates: start: 20030604, end: 20030608
  4. CARBOPLATIN [Suspect]
     Indication: ACUTE MYELOID LEUKAEMIA
     Dosage: 270 MG, QD X 5 DOSES, INTRAVENEOUS
     Route: 042
     Dates: start: 20030604, end: 20030606
  5. TOPOTECAN (TOPOTECAN) [Suspect]
     Indication: ACUTE MYELOID LEUKAEMIA
     Dosage: 1.3 MG, QD X 3 DOSES, INTRVENOUS
     Route: 042
     Dates: start: 20030609, end: 20030611

REACTIONS (10)
  - ASCITES [None]
  - ATELECTASIS [None]
  - CHOLELITHIASIS [None]
  - HEPATOSPLENOMEGALY [None]
  - ILEUS [None]
  - INFARCTION [None]
  - LUNG CONSOLIDATION [None]
  - LUNG INFILTRATION [None]
  - LYMPHADENOPATHY [None]
  - PELVIC MASS [None]
